FAERS Safety Report 10706608 (Version 1)
Quarter: 2015Q1

REPORT INFORMATION
  Report Type: Spontaneous
  Country: US (occurrence: None)
  Receive Date: 20150109
  Receipt Date: 20150109
  Transmission Date: 20150721
  Serious: Yes (Other)
  Sender: FDA-Public Use
  Company Number: None

PATIENT
  Age: 2 Year
  Sex: Male
  Weight: 48.54 kg

DRUGS (6)
  1. MIRALAX [Suspect]
     Active Substance: POLYETHYLENE GLYCOL 3350
     Indication: CONSTIPATION
     Dosage: DAILY .5 CAP, ONCE DAILY
  2. CALCITRIOL. [Concomitant]
     Active Substance: CALCITRIOL
  3. CONCERTA [Concomitant]
     Active Substance: METHYLPHENIDATE HYDROCHLORIDE
  4. MIRALAX [Suspect]
     Active Substance: POLYETHYLENE GLYCOL 3350
     Indication: FEAR OF DISEASE
     Dosage: DAILY .5 CAP, ONCE DAILY
  5. CALCIUM [Concomitant]
     Active Substance: CALCIUM
  6. MULTIVITAMINS [Concomitant]
     Active Substance: VITAMINS

REACTIONS (3)
  - Urinary incontinence [None]
  - Attention deficit/hyperactivity disorder [None]
  - Incorrect drug administration duration [None]
